FAERS Safety Report 19007087 (Version 1)
Quarter: 2021Q1

REPORT INFORMATION
  Report Type: Spontaneous
  Country: US (occurrence: US)
  Receive Date: 20210313
  Receipt Date: 20210313
  Transmission Date: 20210420
  Serious: Yes (Hospitalization)
  Sender: FDA-Public Use
  Company Number: None

PATIENT
  Age: 43 Year
  Sex: Male
  Weight: 126.9 kg

DRUGS (1)
  1. NAFCILLIN [Suspect]
     Active Substance: NAFCILLIN SODIUM

REACTIONS (2)
  - Incorrect drug administration rate [None]
  - Phlebitis [None]

NARRATIVE: CASE EVENT DATE: 20210223
